FAERS Safety Report 11893090 (Version 1)
Quarter: 2016Q1

REPORT INFORMATION
  Report Type: Spontaneous
  Country: US (occurrence: US)
  Receive Date: 20160106
  Receipt Date: 20160106
  Transmission Date: 20160526
  Serious: No
  Sender: FDA-Public Use
  Company Number: US-TEVA-622498USA

PATIENT
  Age: 53 Year
  Sex: Female
  Weight: 83.54 kg

DRUGS (3)
  1. ACTIQ [Suspect]
     Active Substance: FENTANYL CITRATE
     Indication: CYSTITIS INTERSTITIAL
  2. DURAGESIC [Concomitant]
     Active Substance: FENTANYL
  3. ACTIQ [Suspect]
     Active Substance: FENTANYL CITRATE
     Indication: ARTHRALGIA
     Dosage: 6400 MICROGRAM DAILY;
     Route: 065
     Dates: end: 20151227

REACTIONS (4)
  - Pain [Not Recovered/Not Resolved]
  - Dental operation [Not Recovered/Not Resolved]
  - Off label use [Not Recovered/Not Resolved]
  - Surgery [Not Recovered/Not Resolved]

NARRATIVE: CASE EVENT DATE: 201412
